FAERS Safety Report 9407892 (Version 2)
Quarter: 2013Q2

REPORT INFORMATION
  Report Type: Spontaneous
  Country: FR (occurrence: None)
  Receive Date: 20130404
  Receipt Date: 20130417
  Transmission Date: 20140414
  Serious: Yes (Hospitalization, Other)
  Sender: FDA-Public Use
  Company Number: FR-CLINIGEN HEALTHCARE LIMITED-003047

PATIENT
  Age: 49 Year
  Sex: Female

DRUGS (12)
  1. FOSCAVIR [Suspect]
     Indication: HIV INFECTION
     Dosage: 6.00 G, 2.00 TIMES PER-1.0 DAYS
     Route: 042
     Dates: start: 20130118, end: 20130208
  2. DARUNAVIR [Suspect]
     Indication: HIV INFECTION
     Route: 048
     Dates: start: 20130208, end: 20130211
  3. DOLUTEGRAVIR [Suspect]
     Indication: HIV INFECTION
     Route: 048
     Dates: start: 20130208, end: 20130211
  4. INVIRASE [Suspect]
     Indication: HIV INFECTION
     Route: 048
     Dates: start: 20130208, end: 20130211
  5. NORVIR [Suspect]
     Indication: HIV INFECTION
     Route: 048
     Dates: start: 20130208, end: 20130211
  6. BACTRIM [Concomitant]
  7. MARAVIROC [Concomitant]
  8. LEDERFOLINE (LEDERFOLINE) [Concomitant]
  9. UVEDOSE (UVEDOSE) [Concomitant]
  10. MOPRAL (MOPRAL) [Concomitant]
  11. KIVEXA (KIVEXA) [Concomitant]
  12. VIDEX (VIDEX) [Concomitant]

REACTIONS (5)
  - Renal failure acute [None]
  - Medication error [None]
  - Hypokalaemia [None]
  - Incorrect dose administered [None]
  - Anaemia [None]
